FAERS Safety Report 6854581-9 (Version None)
Quarter: 2010Q3

REPORT INFORMATION
  Report Type: 
  Country: None (occurrence: None)
  Receive Date: 20100717
  Receipt Date: 20080219
  Transmission Date: 20110219
  Serious: No
  Sender: FDA-Public Use
  Company Number: US-PFIZER INC-2008000606

PATIENT
  Sex: Female
  Weight: 74.8 kg

DRUGS (9)
  1. CHANTIX [Suspect]
     Indication: SMOKING CESSATION THERAPY
     Dates: start: 20070701
  2. MOMETASONE FUROATE [Concomitant]
  3. SYNTHROID [Concomitant]
  4. CYMBALTA [Concomitant]
  5. NEXIUM [Concomitant]
  6. MONTELUKAST SODIUM [Concomitant]
  7. KLONOPIN [Concomitant]
  8. AXERT [Concomitant]
  9. ALPRAZOLAM [Concomitant]

REACTIONS (1)
  - URINE ODOUR ABNORMAL [None]
